FAERS Safety Report 5270379-X (Version None)
Quarter: 2007Q1

REPORT INFORMATION
  Report Type: 
  Country: None (occurrence: None)
  Receive Date: 20070320
  Receipt Date: 20070312
  Transmission Date: 20070707
  Serious: Yes (Life-Threatening)
  Sender: FDA-Public Use
  Company Number: DE-BOEHRINGER INGELHEIM PHARMACEUTICALS, INC.-2007-DE-01495DE

PATIENT
  Sex: Female

DRUGS (1)
  1. ALNA OCAS [Suspect]

REACTIONS (1)
  - FEAR OF DEATH [None]
